FAERS Safety Report 4928817-5 (Version None)
Quarter: 2006Q1

REPORT INFORMATION
  Report Type: 
  Country: None (occurrence: None)
  Receive Date: 20060228
  Receipt Date: 20060228
  Transmission Date: 20060701
  Serious: No
  Sender: FDA-Public Use
  Company Number: None

PATIENT

DRUGS (1)
  1. BSS PLUS [Suspect]
     Indication: CATARACT OPERATION
     Dosage: APPROX 5CC, ONCE, INTRAOCULAR
     Route: 031
     Dates: start: 20060214, end: 20060214

REACTIONS (4)
  - ANTERIOR CHAMBER CLEAVAGE SYNDROME [None]
  - CORNEAL OEDEMA [None]
  - EYE OPERATION COMPLICATION [None]
  - PUPILLARY REFLEX IMPAIRED [None]
